FAERS Safety Report 21905300 (Version 1)
Quarter: 2023Q1

REPORT INFORMATION
  Report Type: Report from Study
  Country: US (occurrence: US)
  Receive Date: 20230124
  Receipt Date: 20230124
  Transmission Date: 20230418
  Serious: Yes (Other)
  Sender: FDA-Public Use
  Company Number: US-INCYTE CORPORATION-2023IN000538

PATIENT

DRUGS (1)
  1. JAKAFI [Suspect]
     Active Substance: RUXOLITINIB
     Indication: Graft versus host disease
     Route: 065

REACTIONS (4)
  - Graft versus host disease in liver [Unknown]
  - Graft versus host disease oral [Unknown]
  - Graft versus host disease in eye [Unknown]
  - Disease progression [Unknown]
